FAERS Safety Report 25301267 (Version 4)
Quarter: 2025Q2

REPORT INFORMATION
  Report Type: Spontaneous
  Country: DE (occurrence: DE)
  Receive Date: 20250512
  Receipt Date: 20250627
  Transmission Date: 20250716
  Serious: No
  Sender: PFIZER
  Company Number: DE-PFIZER INC-202500093343

PATIENT
  Age: 40 Year
  Sex: Female

DRUGS (1)
  1. MEDROXYPROGESTERONE [Suspect]
     Active Substance: MEDROXYPROGESTERONE
     Indication: Contraception
     Dosage: 104 MG, EVERY 3 MONTHS
     Route: 058

REACTIONS (3)
  - Incorrect dose administered by device [Unknown]
  - Device mechanical issue [Unknown]
  - Device leakage [Unknown]
